FAERS Safety Report 4919611-X (Version None)
Quarter: 2006Q1

REPORT INFORMATION
  Report Type: 
  Country: None (occurrence: None)
  Receive Date: 20060222
  Receipt Date: 20051123
  Transmission Date: 20060701
  Serious: Yes (Hospitalization, Other)
  Sender: FDA-Public Use
  Company Number: US-MERCK-0511USA04475

PATIENT
  Age: 67 Year
  Sex: Male
  Weight: 82 kg

DRUGS (22)
  1. VICODIN [Concomitant]
     Indication: ANALGESIC EFFECT
     Route: 065
     Dates: start: 19960306, end: 20010414
  2. PROSCAR [Concomitant]
     Indication: PROSTATISM
     Route: 065
     Dates: start: 19970707, end: 20010522
  3. COMPRO [Concomitant]
     Route: 065
  4. GENERLAC [Concomitant]
     Route: 065
  5. VIOXX [Suspect]
     Indication: SHOULDER PAIN
     Route: 048
     Dates: start: 20010202, end: 20010907
  6. LANOXIN [Concomitant]
     Indication: ATRIAL FIBRILLATION
     Route: 065
     Dates: start: 19661011, end: 20010926
  7. BEROCCA C [Concomitant]
     Route: 065
  8. GLUCOPHAGE [Concomitant]
     Indication: DIABETES MELLITUS
     Route: 065
     Dates: start: 19990317
  9. NORPACE-NORPACE CR [Concomitant]
     Indication: HEART RATE IRREGULAR
     Route: 065
     Dates: start: 19960610, end: 20010824
  10. ZANTAC [Concomitant]
     Indication: ANTACID THERAPY
     Route: 065
     Dates: start: 19931012, end: 20010917
  11. CARDIZEM [Concomitant]
     Indication: MUSCULOSKELETAL CHEST PAIN
     Route: 065
     Dates: start: 19930813, end: 20010720
  12. PRANDIN [Concomitant]
     Indication: DIABETES MELLITUS
     Route: 065
     Dates: start: 19990627, end: 20010730
  13. PERCOCET [Concomitant]
     Indication: ANALGESIC EFFECT
     Route: 065
     Dates: start: 20000331, end: 20010809
  14. STROVITE [Concomitant]
     Route: 065
  15. TOPROL-XL [Concomitant]
     Indication: ANGINA PECTORIS
     Route: 065
     Dates: start: 20010714
  16. AUGMENTIN '125' [Concomitant]
     Route: 065
     Dates: start: 19960906, end: 20041222
  17. ULTRAM [Concomitant]
     Route: 065
     Dates: start: 20000329, end: 20010205
  18. XANAX [Concomitant]
     Indication: ANXIETY
     Route: 065
     Dates: start: 19940310, end: 20021012
  19. ZITHROMAX [Concomitant]
     Route: 065
     Dates: start: 20010320
  20. GLYBURIDE [Concomitant]
     Route: 065
     Dates: start: 20010530
  21. TYLENOL W/ CODEINE [Concomitant]
     Route: 065
  22. ENTEX (NEW FORMULA) [Concomitant]
     Route: 065

REACTIONS (6)
  - ANGINA PECTORIS [None]
  - ASTHMA [None]
  - ATRIAL FIBRILLATION [None]
  - CEREBROVASCULAR ACCIDENT [None]
  - MYOCARDIAL INFARCTION [None]
  - OBSTRUCTIVE AIRWAYS DISORDER [None]
